FAERS Safety Report 6403388-5 (Version None)
Quarter: 2009Q4

REPORT INFORMATION
  Report Type: 
  Country: None (occurrence: None)
  Receive Date: 20091016
  Receipt Date: 20091006
  Transmission Date: 20100525
  Serious: Yes (Hospitalization)
  Sender: FDA-Public Use
  Company Number: US-JNJFOC-20090907905

PATIENT
  Age: 50 Year
  Sex: Female
  Weight: 86.64 kg

DRUGS (7)
  1. RISPERIDONE [Suspect]
     Indication: SCHIZOPHRENIA
     Route: 030
  2. RISPERIDONE [Concomitant]
  3. ATIVAN [Concomitant]
     Indication: ANXIETY
  4. COGENTIN [Concomitant]
     Indication: MUSCULOSKELETAL STIFFNESS
  5. MULTI-VITAMINS [Concomitant]
  6. DEPAKOTE [Concomitant]
     Indication: MOOD SWINGS
  7. TOPAMAX [Concomitant]

REACTIONS (3)
  - CONFUSIONAL STATE [None]
  - DISORIENTATION [None]
  - PANIC ATTACK [None]
